FAERS Safety Report 14919107 (Version 3)
Quarter: 2019Q1

REPORT INFORMATION
  Report Type: Report from Study
  Country: JP (occurrence: JP)
  Receive Date: 20180521
  Receipt Date: 20190123
  Transmission Date: 20190417
  Serious: Yes (Hospitalization, Other)
  Sender: FDA-Public Use
  Company Number: JP-TEVA-627800ISR

PATIENT
  Age: 45 Year
  Sex: Female
  Weight: 63.7 kg

DRUGS (25)
  1. GLATIRAMER ACETATE INJECTION [Suspect]
     Active Substance: GLATIRAMER ACETATE
     Indication: RELAPSING-REMITTING MULTIPLE SCLEROSIS
     Dosage: 20 MILLIGRAM DAILY;
     Route: 058
     Dates: start: 20151221, end: 20160107
  2. GLATIRAMER ACETATE INJECTION [Suspect]
     Active Substance: GLATIRAMER ACETATE
     Dosage: 20 MILLIGRAM DAILY;
     Route: 058
     Dates: start: 20170904
  3. SOLU-MEDROL [Concomitant]
     Active Substance: METHYLPREDNISOLONE SODIUM SUCCINATE
     Route: 065
     Dates: start: 20160418, end: 20171113
  4. EDIROL [Concomitant]
     Active Substance: ELDECALCITOL
     Route: 065
  5. DEPAS (ETIZOLAM) [Concomitant]
     Active Substance: ETIZOLAM
     Route: 065
  6. TRYPTANOL [Concomitant]
     Active Substance: AMITRIPTYLINE
     Route: 065
     Dates: end: 20170403
  7. MAGNESIUM OXIDE. [Concomitant]
     Active Substance: MAGNESIUM OXIDE
     Route: 065
     Dates: start: 20160229
  8. GLATIRAMER ACETATE INJECTION [Suspect]
     Active Substance: GLATIRAMER ACETATE
     Dosage: 20 MILLIGRAM DAILY;
     Route: 058
     Dates: start: 20160201, end: 20170903
  9. FERROMIA [Concomitant]
     Active Substance: SODIUM FERROUS CITRATE
     Route: 065
     Dates: start: 20111209
  10. MAGLAX [Concomitant]
     Active Substance: MAGNESIUM OXIDE
     Route: 065
     Dates: end: 20160229
  11. LYRICA [Concomitant]
     Active Substance: PREGABALIN
     Route: 065
  12. DEPAKENE-R [Concomitant]
     Active Substance: VALPROATE SODIUM
     Route: 065
  13. LANSOPRAZOLE. [Concomitant]
     Active Substance: LANSOPRAZOLE
     Route: 065
  14. PAROXETINE. [Concomitant]
     Active Substance: PAROXETINE
     Route: 065
  15. ZOLPIDEM TARTRATE. [Concomitant]
     Active Substance: ZOLPIDEM TARTRATE
     Route: 065
  16. SENNOSIDE A+B [Concomitant]
     Active Substance: SENNOSIDES A AND B
     Route: 065
     Dates: start: 20160601, end: 20171110
  17. NEUROTROPIN [Concomitant]
     Active Substance: NEUROTROPIN
     Route: 065
  18. TRAMCET [Concomitant]
     Active Substance: ACETAMINOPHEN\TRAMADOL
     Route: 065
     Dates: end: 20161116
  19. CALONAL [Concomitant]
     Active Substance: ACETAMINOPHEN
     Route: 065
  20. LOXONIN [Concomitant]
     Active Substance: LOXOPROFEN SODIUM
     Route: 065
     Dates: end: 20160118
  21. AZANIN [Concomitant]
     Active Substance: AZATHIOPRINE
     Route: 065
     Dates: start: 20160920
  22. RIVOTRIL [Concomitant]
     Active Substance: CLONAZEPAM
     Route: 065
  23. PREDONINE [Concomitant]
     Active Substance: PREDNISOLONE
     Route: 065
  24. SILECE [Concomitant]
     Active Substance: FLUNITRAZEPAM
     Route: 065
  25. BETANIS [Concomitant]
     Active Substance: MIRABEGRON
     Route: 065

REACTIONS (8)
  - Hypoaesthesia [Recovering/Resolving]
  - Urinary tract infection [Recovered/Resolved]
  - Pyrexia [Recovered/Resolved]
  - Muscular weakness [Recovering/Resolving]
  - Product prescribing error [Unknown]
  - Dizziness postural [Recovering/Resolving]
  - Muscular weakness [Recovering/Resolving]
  - Muscular weakness [Recovering/Resolving]

NARRATIVE: CASE EVENT DATE: 20160104
